FAERS Safety Report 5549995-3 (Version None)
Quarter: 2007Q4

REPORT INFORMATION
  Report Type: 
  Country: None (occurrence: None)
  Receive Date: 20071212
  Receipt Date: 20061230
  Transmission Date: 20080405
  Serious: Yes (Hospitalization)
  Sender: FDA-Public Use
  Company Number: US-BRISTOL-MYERS SQUIBB COMPANY-13638051

PATIENT
  Sex: Female

DRUGS (1)
  1. SERZONE [Suspect]

REACTIONS (2)
  - ADVERSE EVENT [None]
  - PAIN [None]
